FAERS Safety Report 7170690-1 (Version None)
Quarter: 2010Q4

REPORT INFORMATION
  Report Type: 
  Country: None (occurrence: None)
  Receive Date: 20101206
  Receipt Date: 20101122
  Transmission Date: 20110411
  Serious: No
  Sender: FDA-Public Use
  Company Number: 2010P1002874

PATIENT
  Age: 67 Year
  Sex: Female

DRUGS (7)
  1. METFORMIN (NO PREF. NAME) [Suspect]
     Indication: TYPE 2 DIABETES MELLITUS
  2. LISINOPRIL [Concomitant]
  3. ASPIRIN [Concomitant]
  4. METOPROLOL [Concomitant]
  5. CLOPIDOGREL [Concomitant]
  6. ACETAMINOPHEN [Concomitant]
  7. HYDROCODONE [Concomitant]

REACTIONS (6)
  - BLINDNESS TRANSIENT [None]
  - HAEMODIALYSIS [None]
  - HYPOTHERMIA [None]
  - LACTIC ACIDOSIS [None]
  - METABOLIC ACIDOSIS [None]
  - RESPIRATORY RATE INCREASED [None]
